FAERS Safety Report 6717345-2 (Version None)
Quarter: 2010Q2

REPORT INFORMATION
  Report Type: 
  Country: None (occurrence: None)
  Receive Date: 20100510
  Receipt Date: 20100510
  Transmission Date: 20101027
  Serious: Yes (Hospitalization)
  Sender: FDA-Public Use
  Company Number: None

PATIENT
  Age: 11 Year
  Sex: Female
  Weight: 32.3 kg

DRUGS (2)
  1. CHILDREN'S MOTRIN [Suspect]
     Indication: PYREXIA
     Dosage: 2+1/2 TEASPOON TWICE DAILY
     Dates: start: 20100418, end: 20100424
  2. CHILDREN'S MOTRIN [Suspect]

REACTIONS (6)
  - ABDOMINAL PAIN UPPER [None]
  - BENIGN INTRACRANIAL HYPERTENSION [None]
  - COXSACKIE VIRUS TEST POSITIVE [None]
  - MOUTH ULCERATION [None]
  - PYREXIA [None]
  - RASH [None]
